FAERS Safety Report 6195917-4 (Version None)
Quarter: 2009Q2

REPORT INFORMATION
  Report Type: 
  Country: None (occurrence: None)
  Receive Date: 20090520
  Receipt Date: 20090506
  Transmission Date: 20091009
  Serious: Yes (Hospitalization)
  Sender: FDA-Public Use
  Company Number: FR-CELGENEUS-056-C5013-09021344

PATIENT
  Sex: Male
  Weight: 66 kg

DRUGS (4)
  1. CC-5013 [Suspect]
     Indication: NON-HODGKIN'S LYMPHOMA
     Route: 048
     Dates: start: 20081209
  2. CC-5013 [Suspect]
     Route: 048
     Dates: start: 20090217, end: 20090305
  3. ACETAMINOPHEN [Concomitant]
     Indication: PAIN
     Route: 048
     Dates: start: 20081209
  4. ACETAMINOPHEN [Concomitant]
     Route: 048
     Dates: start: 20090220

REACTIONS (4)
  - DISEASE PROGRESSION [None]
  - DYSPNOEA [None]
  - OEDEMA PERIPHERAL [None]
  - TUMOUR FLARE [None]
